FAERS Safety Report 12471894 (Version 1)
Quarter: 2016Q2

REPORT INFORMATION
  Report Type: Spontaneous
  Country: US (occurrence: None)
  Receive Date: 20160615
  Receipt Date: 20160615
  Transmission Date: 20160815
  Serious: Yes (Hospitalization)
  Sender: FDA-Public Use
  Company Number: None

PATIENT
  Age: 72 Year
  Sex: Male
  Weight: 49.67 kg

DRUGS (10)
  1. ZESTRIL [Concomitant]
     Active Substance: LISINOPRIL
  2. PACERONE [Concomitant]
     Active Substance: AMIODARONE HYDROCHLORIDE
  3. ZOCOR [Concomitant]
     Active Substance: SIMVASTATIN
  4. LUMIGAN [Concomitant]
     Active Substance: BIMATOPROST
  5. MAG OX [Concomitant]
     Active Substance: MAGNESIUM OXIDE
  6. TIMOPTIC [Concomitant]
     Active Substance: TIMOLOL MALEATE
  7. COREG [Concomitant]
     Active Substance: CARVEDILOL
  8. WARFARIN [Suspect]
     Active Substance: WARFARIN
     Indication: ATRIAL FIBRILLATION
     Dosage: 5MG QPM PO
     Route: 048
  9. CARDIZEM [Concomitant]
     Active Substance: DILTIAZEM HYDROCHLORIDE
  10. ZOFRAN [Concomitant]
     Active Substance: ONDANSETRON HYDROCHLORIDE

REACTIONS (3)
  - International normalised ratio increased [None]
  - Nausea [None]
  - Vomiting [None]

NARRATIVE: CASE EVENT DATE: 20151229
